FAERS Safety Report 26186819 (Version 1)
Quarter: 2025Q4

REPORT INFORMATION
  Report Type: Spontaneous
  Country: EU (occurrence: EU)
  Receive Date: 20251222
  Receipt Date: 20251222
  Transmission Date: 20260118
  Serious: Yes (Other)
  Sender: MERCK SHARP & DOHME LLC
  Company Number: None

PATIENT
  Age: 13 Year
  Sex: Female

DRUGS (2)
  1. M-M-RVAXPRO [Suspect]
     Active Substance: MEASLES VIRUS STRAIN ENDERS^ ATTENUATED EDMONSTON LIVE ANTIGEN\MUMPS VIRUS STRAIN B LEVEL JERYL LYNN
     Dates: start: 201812
  2. STERILE DILUENT (WATER) [Suspect]
     Active Substance: WATER
     Dates: start: 201812

REACTIONS (5)
  - Pain in extremity [Unknown]
  - Mouth swelling [Unknown]
  - Syncope [Unknown]
  - Urticaria [Unknown]
  - Body temperature increased [Unknown]
